FAERS Safety Report 22250954 (Version 1)
Quarter: 2023Q2

REPORT INFORMATION
  Report Type: Spontaneous
  Country: US (occurrence: None)
  Receive Date: 20230425
  Receipt Date: 20230425
  Transmission Date: 20230722
  Serious: No
  Sender: FDA-Public Use
  Company Number: None

PATIENT
  Age: 74 Year
  Sex: Female

DRUGS (1)
  1. ESTRADIOL [Suspect]
     Active Substance: ESTRADIOL
     Dosage: FREQUENCY : EVERY OTHER WEEK;?
     Route: 062
     Dates: end: 20230424

REACTIONS (2)
  - Application site rash [None]
  - Application site pruritus [None]

NARRATIVE: CASE EVENT DATE: 20230424
